FAERS Safety Report 6213469-7 (Version None)
Quarter: 2009Q2

REPORT INFORMATION
  Report Type: 
  Country: None (occurrence: None)
  Receive Date: 20090603
  Receipt Date: 20090522
  Transmission Date: 20091009
  Serious: Yes (Other)
  Sender: FDA-Public Use
  Company Number: CA-PFIZER INC-2008152523

PATIENT
  Age: 55 Year

DRUGS (3)
  1. REVATIO [Suspect]
     Indication: PULMONARY HYPERTENSION
     Route: 048
  2. NITROGLYCERIN [Interacting]
     Indication: CHEST PAIN
     Route: 060
  3. NITROGLYCERIN [Interacting]
     Route: 042

REACTIONS (2)
  - CHEST PAIN [None]
  - MEDICATION ERROR [None]
